FAERS Safety Report 10201164 (Version 1)
Quarter: 2014Q2

REPORT INFORMATION
  Report Type: Spontaneous
  Country: US (occurrence: US)
  Receive Date: 20140528
  Receipt Date: 20140528
  Transmission Date: 20141212
  Serious: No
  Sender: FDA-Public Use
  Company Number: US-MYLANLABS-2014S1007268

PATIENT
  Sex: Female

DRUGS (11)
  1. METOPROLOL SUCCINATE [Suspect]
     Indication: HYPERTENSION
     Route: 048
  2. MONTELUKAST SODIUM TABLETS [Suspect]
     Indication: MULTIPLE ALLERGIES
     Route: 048
     Dates: start: 201402, end: 201403
  3. FISH OIL [Concomitant]
  4. NIACIN [Concomitant]
  5. CALCIUM [Concomitant]
  6. VITAMIN D3 [Concomitant]
  7. VITAMIN C [Concomitant]
  8. LORAZEPAM [Concomitant]
  9. DEXILANT [Concomitant]
  10. BUDESONIDE [Concomitant]
  11. CARDIZEM [Concomitant]

REACTIONS (1)
  - Cardiac disorder [Not Recovered/Not Resolved]
